FAERS Safety Report 13354547 (Version 2)
Quarter: 2017Q2

REPORT INFORMATION
  Report Type: Spontaneous
  Country: KR (occurrence: KR)
  Receive Date: 20170321
  Receipt Date: 20170606
  Transmission Date: 20170830
  Serious: Yes (Other)
  Sender: FDA-Public Use
  Company Number: KR-009507513-1703KOR008764

PATIENT
  Age: 32 Year
  Sex: Male
  Weight: 75.7 kg

DRUGS (18)
  1. DOXORUBICIN HYDROCHLORIDE. [Concomitant]
     Active Substance: DOXORUBICIN HYDROCHLORIDE
     Indication: DIFFUSE LARGE B-CELL LYMPHOMA
     Dosage: 95 MG, ONCE, CYCLE: 1
     Route: 042
     Dates: start: 20170209, end: 20170209
  2. DOXORUBICIN HYDROCHLORIDE. [Concomitant]
     Active Substance: DOXORUBICIN HYDROCHLORIDE
     Dosage: 95 MG, ONCE, CYCLE: 2
     Route: 042
     Dates: start: 20170302, end: 20170302
  3. MABTHERA [Concomitant]
     Active Substance: RITUXIMAB
     Indication: DIFFUSE LARGE B-CELL LYMPHOMA
     Dosage: 720 MG, ONCE, CYCLE: 1
     Route: 042
     Dates: start: 20170209, end: 20170209
  4. ENDOXAN [Concomitant]
     Active Substance: CYCLOPHOSPHAMIDE
     Indication: DIFFUSE LARGE B-CELL LYMPHOMA
     Dosage: 1140 MG, ONCE, CYCLE: 1
     Route: 042
     Dates: start: 20170209, end: 20170209
  5. KYTRIL [Concomitant]
     Active Substance: GRANISETRON HYDROCHLORIDE
     Dosage: 1 ML, ONCE
     Route: 042
     Dates: start: 20170302, end: 20170302
  6. LEVOTUSS [Concomitant]
     Active Substance: LEVODROPROPIZINE
     Indication: PNEUMONIA
     Dosage: 1 TABLET, BID
     Route: 048
     Dates: start: 20170126, end: 20170213
  7. KYTRIL [Concomitant]
     Active Substance: GRANISETRON HYDROCHLORIDE
     Indication: PREMEDICATION
     Dosage: 1 ML, ONCE
     Route: 042
     Dates: start: 20170209, end: 20170209
  8. VINCRISTINE SULFATE. [Concomitant]
     Active Substance: VINCRISTINE SULFATE
     Dosage: 2 MG, ONCE, CYCLE: 2
     Route: 042
     Dates: start: 20170302, end: 20170302
  9. EMEND (FOSAPREPITANT DIMEGLUMINE) [Suspect]
     Active Substance: FOSAPREPITANT DIMEGLUMINE
     Dosage: 150 MG, ONCE
     Route: 042
     Dates: start: 20170302, end: 20170302
  10. VINCRISTINE SULFATE. [Concomitant]
     Active Substance: VINCRISTINE SULFATE
     Indication: DIFFUSE LARGE B-CELL LYMPHOMA
     Dosage: 2 MG, ONCE, CYCLE: 1, STRENGTH 1MG/ML
     Route: 042
     Dates: start: 20170209, end: 20170209
  11. SOLONDO [Concomitant]
     Active Substance: PREDNISOLONE
     Indication: PREMEDICATION
     Dosage: 100 MG, QD
     Route: 048
     Dates: start: 20170209, end: 20170213
  12. SOLONDO [Concomitant]
     Active Substance: PREDNISOLONE
     Dosage: 100 MG, QD
     Route: 048
     Dates: start: 20170302, end: 20170306
  13. NADOXOL [Concomitant]
     Indication: PNEUMONIA
     Dosage: 15 MG, QD, STRENGTH : 15MG/2ML
     Route: 042
     Dates: start: 20170201, end: 20170213
  14. CLARI [Concomitant]
     Indication: PNEUMONIA
     Dosage: 500 MG (1 TABLET), QD
     Route: 048
     Dates: start: 20170207, end: 20170213
  15. EMEND (FOSAPREPITANT DIMEGLUMINE) [Suspect]
     Active Substance: FOSAPREPITANT DIMEGLUMINE
     Indication: PROPHYLAXIS OF NAUSEA AND VOMITING
     Dosage: 150 MG, ONCE
     Route: 042
     Dates: start: 20170209, end: 20170209
  16. ENDOXAN [Concomitant]
     Active Substance: CYCLOPHOSPHAMIDE
     Dosage: 1440 MG, ONCE, CYCLE: 2
     Route: 042
     Dates: start: 20170302, end: 20170302
  17. MABTHERA [Concomitant]
     Active Substance: RITUXIMAB
     Dosage: 720 MG, ONCE, CYCLE: 2
     Dates: start: 20170302, end: 20170302
  18. ANYCOUGH [Concomitant]
     Active Substance: THEOBROMINE
     Indication: PNEUMONIA
     Dosage: 300 MG (1 TABLET), BID
     Route: 048
     Dates: start: 20170126

REACTIONS (2)
  - Nausea [Recovered/Resolved]
  - Jugular vein thrombosis [Recovered/Resolved]

NARRATIVE: CASE EVENT DATE: 20170210
